FAERS Safety Report 22968330 (Version 3)
Quarter: 2023Q4

REPORT INFORMATION
  Report Type: Spontaneous
  Country: FI (occurrence: FI)
  Receive Date: 20230921
  Receipt Date: 20231013
  Transmission Date: 20240110
  Serious: Yes (Other)
  Sender: FDA-Public Use
  Company Number: FI-PFIZER INC-202300306472

PATIENT
  Age: 24 Year
  Sex: Female
  Weight: 83 kg

DRUGS (3)
  1. CIBINQO [Suspect]
     Active Substance: ABROCITINIB
     Dosage: 200 MG, 1X/DAY
     Route: 048
  2. CIBINQO [Suspect]
     Active Substance: ABROCITINIB
     Dosage: 100 MG, 1X/DAY
     Route: 048
  3. VAGIPREV [Concomitant]
     Indication: Contraception
     Dosage: UNK

REACTIONS (1)
  - Neutropenia [Recovered/Resolved]
